FAERS Safety Report 18473509 (Version 1)
Quarter: 2020Q4

REPORT INFORMATION
  Report Type: Spontaneous
  Country: US (occurrence: US)
  Receive Date: 20201106
  Receipt Date: 20201106
  Transmission Date: 20210114
  Serious: Yes (Other)
  Sender: FDA-Public Use
  Company Number: None

PATIENT
  Age: 71 Year
  Sex: Female
  Weight: 60.84 kg

DRUGS (17)
  1. PIQRAY [Suspect]
     Active Substance: ALPELISIB
     Indication: BREAST CANCER STAGE IV
     Route: 048
     Dates: start: 20201016, end: 20201103
  2. ATIVAN [Concomitant]
     Active Substance: LORAZEPAM
  3. POLYETHYLENE GLYCOL [Concomitant]
     Active Substance: POLYETHYLENE GLYCOLS
  4. LACTULOSE. [Concomitant]
     Active Substance: LACTULOSE
  5. ZOLOFT [Concomitant]
     Active Substance: SERTRALINE HYDROCHLORIDE
  6. NUCYNTA [Concomitant]
     Active Substance: TAPENTADOL HYDROCHLORIDE
  7. PHENERGAN [Concomitant]
     Active Substance: PROMETHAZINE HYDROCHLORIDE
  8. PROCHLORPERAZINE. [Concomitant]
     Active Substance: PROCHLORPERAZINE
  9. ZOLPIDEM ER [Concomitant]
     Active Substance: ZOLPIDEM TARTRATE
  10. FENTANYL. [Concomitant]
     Active Substance: FENTANYL
  11. LIPITOR [Concomitant]
     Active Substance: ATORVASTATIN CALCIUM
  12. NASONEX [Concomitant]
     Active Substance: MOMETASONE FUROATE
  13. FASLODEX [Concomitant]
     Active Substance: FULVESTRANT
  14. MEGESTROL [Concomitant]
     Active Substance: MEGESTROL
  15. PILOCARPINE. [Concomitant]
     Active Substance: PILOCARPINE
  16. PROTONIX [Concomitant]
     Active Substance: PANTOPRAZOLE SODIUM
  17. DRONABINOL. [Concomitant]
     Active Substance: DRONABINOL

REACTIONS (4)
  - Therapy cessation [None]
  - Rash [None]
  - Hyperglycaemia [None]
  - Stomatitis [None]

NARRATIVE: CASE EVENT DATE: 20201020
